FAERS Safety Report 9074887 (Version 2)
Quarter: 2013Q1

REPORT INFORMATION
  Report Type: Spontaneous
  Country: US (occurrence: US)
  Receive Date: 20130129
  Receipt Date: 20130308
  Transmission Date: 20140127
  Serious: Yes (Hospitalization)
  Sender: FDA-Public Use
  Company Number: US-TEVA-382796USA

PATIENT
  Sex: Male

DRUGS (13)
  1. TREANDA [Suspect]
     Indication: B-CELL SMALL LYMPHOCYTIC LYMPHOMA
     Route: 042
     Dates: start: 201209
  2. TREANDA [Suspect]
     Route: 042
  3. TREANDA [Suspect]
     Route: 042
  4. TREANDA [Suspect]
     Route: 042
  5. TREANDA [Suspect]
     Dosage: CYCLE #5
     Route: 042
     Dates: start: 20121212
  6. RITUXIMAB [Suspect]
     Indication: B-CELL SMALL LYMPHOCYTIC LYMPHOMA
     Dates: start: 201209
  7. RITUXIMAB [Suspect]
  8. RITUXIMAB [Suspect]
  9. RITUXIMAB [Suspect]
  10. AMITRIPTYLINE [Concomitant]
  11. METROPROLOL [Concomitant]
  12. VALTREX [Concomitant]
  13. RITUXAN [Concomitant]

REACTIONS (2)
  - Pulmonary fibrosis [Recovering/Resolving]
  - Cough [Recovered/Resolved]
